FAERS Safety Report 24755413 (Version 1)
Quarter: 2024Q4

REPORT INFORMATION
  Report Type: Spontaneous
  Country: US (occurrence: US)
  Receive Date: 20241219
  Receipt Date: 20241219
  Transmission Date: 20250115
  Serious: Yes (Other)
  Sender: PFIZER
  Company Number: US-PFIZER INC-202400325090

PATIENT
  Age: 76 Year
  Sex: Male
  Weight: 107.95 kg

DRUGS (1)
  1. PAXLOVID [Suspect]
     Active Substance: NIRMATRELVIR\RITONAVIR
     Indication: COVID-19 treatment
     Dosage: [NIRMATRELVIR 300 MG]/[RITONAVIR 100 MG]; 2X/DAY
     Dates: start: 20241204, end: 20241207

REACTIONS (8)
  - Near death experience [Unknown]
  - Renal disorder [Unknown]
  - Peripheral swelling [Not Recovered/Not Resolved]
  - Renal pain [Recovering/Resolving]
  - Urinary incontinence [Unknown]
  - Constipation [Unknown]
  - Dizziness [Unknown]
  - Dysgeusia [Unknown]

NARRATIVE: CASE EVENT DATE: 20241204
